FAERS Safety Report 7449885-5 (Version None)
Quarter: 2011Q2

REPORT INFORMATION
  Report Type: 
  Country: None (occurrence: None)
  Receive Date: 20110502
  Receipt Date: 20100429
  Transmission Date: 20111010
  Serious: No
  Sender: FDA-Public Use
  Company Number: US-BAYER-201021519NA

PATIENT
  Age: 15 Year
  Sex: Female

DRUGS (2)
  1. YAZ [Suspect]
     Indication: PREMENSTRUAL SYNDROME
     Dosage: UNK
     Dates: end: 20100101
  2. YAZ [Suspect]
     Indication: ACNE

REACTIONS (1)
  - AMENORRHOEA [None]
